FAERS Safety Report 7751323-X (Version None)
Quarter: 2011Q3

REPORT INFORMATION
  Report Type: 
  Country: None (occurrence: None)
  Receive Date: 20110914
  Receipt Date: 20110908
  Transmission Date: 20111222
  Serious: Yes (Other)
  Sender: FDA-Public Use
  Company Number: CHPA2011US12161

PATIENT
  Sex: Female

DRUGS (3)
  1. GAS-X EXTRA STRENGTH SOFTGELS [Suspect]
     Dosage: 1-2 DF, PRN
     Route: 048
     Dates: start: 20100101
  2. CONTRACEPTIVES [Concomitant]
     Dosage: UNK, UNK
  3. GAS-X EXTRA STRENGTH SOFTGELS [Suspect]
     Indication: FEELING ABNORMAL
     Dosage: UNK DF, UNK
     Route: 048
     Dates: end: 20100101

REACTIONS (2)
  - OFF LABEL USE [None]
  - COELIAC DISEASE [None]
